FAERS Safety Report 13597714 (Version 1)
Quarter: 2017Q2

REPORT INFORMATION
  Report Type: Spontaneous
  Country: US (occurrence: US)
  Receive Date: 20170531
  Receipt Date: 20170531
  Transmission Date: 20170830
  Serious: Yes (Death, Hospitalization, Other)
  Sender: FDA-Public Use
  Company Number: None

PATIENT
  Age: 29 Year
  Sex: Female
  Weight: 155.4 kg

DRUGS (1)
  1. NUVARING [Suspect]
     Active Substance: ETHINYL ESTRADIOL\ETONOGESTREL
     Indication: CONTRACEPTION
     Route: 067

REACTIONS (5)
  - Pulseless electrical activity [None]
  - Dyspnoea [None]
  - Pulmonary embolism [None]
  - Cardiac arrest [None]
  - Electrocardiogram T wave inversion [None]

NARRATIVE: CASE EVENT DATE: 20170403
